FAERS Safety Report 17904807 (Version 2)
Quarter: 2020Q3

REPORT INFORMATION
  Report Type: Spontaneous
  Country: GB (occurrence: GB)
  Receive Date: 20200616
  Receipt Date: 20200721
  Transmission Date: 20201103
  Serious: Yes (Other)
  Sender: FDA-Public Use
  Company Number: NVSC2020GB090650

PATIENT
  Age: 32 Year
  Sex: Female

DRUGS (18)
  1. MOMETASONE [Suspect]
     Active Substance: MOMETASONE
     Indication: CHRONIC SINUSITIS
     Dosage: UNK
     Route: 045
  2. SALBUTAMOL [Concomitant]
     Active Substance: ALBUTEROL
     Indication: ASTHMA
  3. PREDNISOLONE. [Suspect]
     Active Substance: PREDNISOLONE
     Dosage: 40 MG, QD
     Route: 048
  4. MONTELUKAST [Suspect]
     Active Substance: MONTELUKAST SODIUM
     Indication: ASTHMA
     Dosage: UNK
     Route: 065
  5. PREDNISOLONE. [Suspect]
     Active Substance: PREDNISOLONE
     Dosage: REDUCED DOSE
     Route: 048
  6. RESLIZUMAB [Suspect]
     Active Substance: RESLIZUMAB
     Indication: ASTHMA
     Dosage: UNK
     Route: 065
  7. FLUTICASONE. [Suspect]
     Active Substance: FLUTICASONE
     Indication: ASTHMA
     Dosage: 4 DOSAGE FORMS DAILY; PRESSURISED METERED DOSE INHALER 2PUFFS TWICE DAILY THROUGH A SPACER; 1 DOSAGE
     Route: 055
  8. OMEPRAZOLE. [Concomitant]
     Active Substance: OMEPRAZOLE
     Indication: GASTROOESOPHAGEAL REFLUX DISEASE
     Dosage: UNK
     Route: 065
  9. MEPOLIZUMAB [Suspect]
     Active Substance: MEPOLIZUMAB
     Indication: ASTHMA
     Dosage: UNK
     Route: 065
  10. MOMETASONE [Suspect]
     Active Substance: MOMETASONE
     Indication: CHRONIC RHINOSINUSITIS WITH NASAL POLYPS
  11. PREDNISOLONE. [Suspect]
     Active Substance: PREDNISOLONE
     Dosage: 20 MG, QD, DOSE AGAIN INCREASED
     Route: 048
  12. PREDNISOLONE. [Suspect]
     Active Substance: PREDNISOLONE
     Dosage: 4 MG, QD
     Route: 048
  13. BUDESONIDE. [Suspect]
     Active Substance: BUDESONIDE
     Indication: ASTHMA
     Dosage: 5 DOSAGE FORMS DAILY; BUDESONIDE/FORMOTEROL 400 MICROG/12 MICROG, DRY POWDER INHALER, 1 DOSAGE FORM
     Route: 055
  14. TIOTROPIUM [Concomitant]
     Active Substance: TIOTROPIUM
     Indication: ASTHMA
     Dosage: UNK
     Route: 055
  15. PREDNISOLONE. [Suspect]
     Active Substance: PREDNISOLONE
     Indication: ASTHMA
     Dosage: 5 MG, QD
     Route: 048
  16. MOMETASONE [Suspect]
     Active Substance: MOMETASONE
     Indication: RHINITIS ALLERGIC
  17. SALBUTAMOL [Concomitant]
     Active Substance: ALBUTEROL
     Indication: DYSPNOEA
     Dosage: UNK
     Route: 055
  18. BUDESONIDE. [Suspect]
     Active Substance: BUDESONIDE
     Dosage: 4 DOSAGE FORMS DAILY; PRESSURISED METERED DOSE INHALER 2PUFFS TWICE DAILY THROUGH A SPACER; 1 DOSAGE
     Route: 055

REACTIONS (9)
  - Myalgia [Unknown]
  - Urticaria [Unknown]
  - Oropharyngeal pain [Unknown]
  - Asthma [Recovering/Resolving]
  - Adrenal suppression [Unknown]
  - Headache [Unknown]
  - Paradoxical drug reaction [Unknown]
  - Alopecia [Recovering/Resolving]
  - Drug ineffective [Unknown]
